FAERS Safety Report 21740965 (Version 1)
Quarter: 2022Q4

REPORT INFORMATION
  Report Type: Spontaneous
  Country: GB (occurrence: GB)
  Receive Date: 20221216
  Receipt Date: 20221216
  Transmission Date: 20230112
  Serious: No
  Sender: FDA-Public Use
  Company Number: GB-PFIZER INC-PV202200122340

PATIENT
  Age: 15 Year
  Sex: Female

DRUGS (2)
  1. GENOTROPIN [Suspect]
     Active Substance: SOMATROPIN
     Dosage: 2.0 MG, DAILY (2.0MG FOR 6 DAYS WEEKLY)
  2. GENOTROPIN [Suspect]
     Active Substance: SOMATROPIN
     Dosage: 1.8 MG, WEEKLY (1.8MG FOR 1 DAY WEEKLY)

REACTIONS (2)
  - Device breakage [Unknown]
  - Drug dose omission by device [Unknown]
